FAERS Safety Report 19002181 (Version 1)
Quarter: 2021Q1

REPORT INFORMATION
  Report Type: Spontaneous
  Country: DE (occurrence: DE)
  Receive Date: 20210312
  Receipt Date: 20210312
  Transmission Date: 20210420
  Serious: Yes (Hospitalization, Other)
  Sender: FDA-Public Use
  Company Number: DE-SA-2021SA082389

PATIENT
  Age: 68 Year
  Sex: Male

DRUGS (8)
  1. FLUOROURACIL. [Suspect]
     Active Substance: FLUOROURACIL
     Dosage: FIRST CYCLE ON 14/12/2020
     Dates: start: 20201214
  2. FOLINSAEURE [Suspect]
     Active Substance: LEUCOVORIN
     Dosage: FIRST CYCLE ON 14/12/2023
     Dates: start: 20201214
  3. METOPROLOL. [Concomitant]
     Active Substance: METOPROLOL
     Dosage: 47.5 MG, 2?0?1?0
  4. SIMVASTATIN. [Concomitant]
     Active Substance: SIMVASTATIN
     Dosage: 20 MG, 0?0?1?0
  5. METAMIZOL [METAMIZOLE SODIUM] [Concomitant]
     Dosage: IF NECESSARY, DROPS
  6. OXALIPLATIN. [Suspect]
     Active Substance: OXALIPLATIN
     Dosage: FIRST CYCLE ON 14/12/2021
     Dates: start: 20201214
  7. APIXABAN [Concomitant]
     Active Substance: APIXABAN
     Dosage: 5 MG, 1?0?1?0
  8. IRINOTECAN [Suspect]
     Active Substance: IRINOTECAN
     Dosage: FIRST CYCLE ON 14/12/2022`
     Dates: start: 20201214

REACTIONS (7)
  - Cholangitis [Unknown]
  - Abdominal pain [Unknown]
  - Neutropenia [Unknown]
  - Nausea [Unknown]
  - Diarrhoea [Unknown]
  - Vomiting [Unknown]
  - Abdominal pain upper [Unknown]

NARRATIVE: CASE EVENT DATE: 202012
